FAERS Safety Report 22313871 (Version 1)
Quarter: 2023Q2

REPORT INFORMATION
  Report Type: Spontaneous
  Country: JP (occurrence: JP)
  Receive Date: 20230512
  Receipt Date: 20230512
  Transmission Date: 20230722
  Serious: Yes (Other)
  Sender: FDA-Public Use
  Company Number: JP-PFIZER INC-PV202300082017

PATIENT
  Age: 11 Year
  Sex: Male

DRUGS (5)
  1. METHOTREXATE SODIUM [Interacting]
     Active Substance: METHOTREXATE SODIUM
     Indication: B precursor type acute leukaemia
     Dosage: UNK, CYCLIC (5 G/KG FOR 24 HOURS)
     Route: 042
  2. VFEND [Interacting]
     Active Substance: VORICONAZOLE
     Dosage: 460 MG, DAILY
     Route: 042
  3. CYTARABINE [Concomitant]
     Active Substance: CYTARABINE
     Dosage: UNK
  4. PREDNISOLONE [Concomitant]
     Active Substance: PREDNISOLONE
     Dosage: UNK
  5. MERCAPTOPURINE [Concomitant]
     Active Substance: MERCAPTOPURINE
     Dosage: UNK (BEFORE SLEEPING)

REACTIONS (2)
  - Drug interaction [Unknown]
  - Drug level increased [Unknown]
